FAERS Safety Report 20353283 (Version 5)
Quarter: 2023Q1

REPORT INFORMATION
  Report Type: Report from Study
  Country: JP (occurrence: JP)
  Receive Date: 20220119
  Receipt Date: 20230103
  Transmission Date: 20230417
  Serious: Yes (Hospitalization)
  Sender: FDA-Public Use
  Company Number: JP-JNJFOC-20220123143

PATIENT
  Age: 54 Year
  Sex: Female
  Weight: 63.4 kg

DRUGS (49)
  1. AMIVANTAMAB [Suspect]
     Active Substance: AMIVANTAMAB
     Indication: Non-small cell lung cancer metastatic
     Dosage: DOSE ALSO REPORTED AS 250 ML; MOST RECENT DOSE ON 23-DEC-2021
     Route: 042
     Dates: start: 20211111
  2. ESTRADIOL [Concomitant]
     Active Substance: ESTRADIOL
     Indication: Menopausal symptoms
     Route: 061
     Dates: start: 20160101
  3. FLURANDRENOLIDE [Concomitant]
     Active Substance: FLURANDRENOLIDE
     Indication: Rash
     Route: 062
     Dates: start: 202201
  4. FLURANDRENOLIDE [Concomitant]
     Active Substance: FLURANDRENOLIDE
     Route: 062
     Dates: start: 20220117
  5. FLURANDRENOLIDE [Concomitant]
     Active Substance: FLURANDRENOLIDE
     Dosage: DOSE: 1 (UNITS NOT PROVIDED)
     Route: 062
     Dates: start: 20220929
  6. PREDNISOLONE VALERATE ACETATE [Concomitant]
     Active Substance: PREDNISOLONE VALERATE ACETATE
     Indication: Rash
     Dosage: DRUG STRUCTURE DOSAGE NUMBER: 1 UNSPECIFIED UNIT
     Route: 061
     Dates: start: 20211113, end: 20220105
  7. MINOCYCLINE HYDROCHLORIDE [Concomitant]
     Active Substance: MINOCYCLINE HYDROCHLORIDE
     Indication: Rash
     Route: 048
     Dates: start: 20211113, end: 20220105
  8. MINOCYCLINE HYDROCHLORIDE [Concomitant]
     Active Substance: MINOCYCLINE HYDROCHLORIDE
     Route: 048
     Dates: start: 20220106, end: 20220116
  9. MINOCYCLINE HYDROCHLORIDE [Concomitant]
     Active Substance: MINOCYCLINE HYDROCHLORIDE
     Route: 048
     Dates: start: 20220117, end: 20220216
  10. MINOCYCLINE HYDROCHLORIDE [Concomitant]
     Active Substance: MINOCYCLINE HYDROCHLORIDE
     Route: 048
     Dates: start: 20220217
  11. DUPHASTON [Concomitant]
     Active Substance: DYDROGESTERONE
     Indication: Menopausal symptoms
     Dosage: FREQ: OTHER
     Route: 048
     Dates: start: 20160101, end: 20220113
  12. BILASTINE [Concomitant]
     Active Substance: BILASTINE
     Indication: Rash
     Route: 048
     Dates: start: 20211118, end: 20220105
  13. BILASTINE [Concomitant]
     Active Substance: BILASTINE
     Route: 048
     Dates: start: 20220106, end: 20220116
  14. BILASTINE [Concomitant]
     Active Substance: BILASTINE
     Route: 048
     Dates: start: 20220117, end: 20220216
  15. BILASTINE [Concomitant]
     Active Substance: BILASTINE
     Route: 048
     Dates: start: 20220331
  16. PULMICORT TURBUHALER [Concomitant]
     Active Substance: BUDESONIDE
     Indication: Cough variant asthma
     Route: 055
     Dates: start: 20200101
  17. GENTAMICIN SULFATE [Concomitant]
     Active Substance: GENTAMICIN SULFATE
     Indication: Paronychia
     Dosage: DRUG STRUCTURE DOSAGE NUMBER: 1 UNSPECIFIED UNIT
     Route: 061
     Dates: start: 20220106, end: 20220223
  18. GENTAMICIN SULFATE [Concomitant]
     Active Substance: GENTAMICIN SULFATE
     Dosage: DOSE: 1, UNIT: NOT REPORTED
     Route: 061
     Dates: start: 20220224
  19. GLYCOSAMINOGLYCANS [Concomitant]
     Active Substance: GLYCOSAMINOGLYCANS
     Indication: Rash
     Dosage: DRUG STRUCTURE DOSAGE NUMBER: 1 UNSPECIFIED UNIT
     Route: 061
     Dates: start: 20211113, end: 20220105
  20. GLYCOSAMINOGLYCANS [Concomitant]
     Active Substance: GLYCOSAMINOGLYCANS
     Indication: Dry skin
     Dosage: DRUG STRUCTURE DOSAGE NUMBER: 1 UNSPECIFIED UNIT
     Route: 061
     Dates: start: 20211205
  21. GLYCOSAMINOGLYCANS [Concomitant]
     Active Substance: GLYCOSAMINOGLYCANS
     Indication: Paronychia
     Dosage: DRUG STRUCTURE DOSAGE NUMBER: 1 UNSPECIFIED UNIT
     Route: 061
     Dates: start: 20211223, end: 20220223
  22. GLYCOSAMINOGLYCANS [Concomitant]
     Active Substance: GLYCOSAMINOGLYCANS
     Dosage: DRUG STRUCTURE DOSAGE NUMBER: 1 UNSPECIFIED UNIT?ALSO REPORTED AS LOTION
     Route: 061
     Dates: start: 20220224
  23. MYSER [DIFLUPREDNATE] [Concomitant]
     Indication: Rash
     Dosage: DRUG STRUCTURE DOSAGE NUMBER: 1 UNSPECIFIED UNIT
     Route: 061
     Dates: start: 20211113, end: 20220105
  24. MYSER [DIFLUPREDNATE] [Concomitant]
     Indication: Paronychia
     Dosage: DRUG STRUCTURE DOSAGE NUMBER: 1 UNSPECIFIED UNIT
     Route: 061
     Dates: start: 20220106, end: 20220116
  25. MYSER [DIFLUPREDNATE] [Concomitant]
     Dosage: DOSE 1 UNITS NOT PROVIDED
     Route: 061
     Dates: start: 20220117, end: 20220216
  26. MYSER [DIFLUPREDNATE] [Concomitant]
     Dosage: DRUG STRUCTURE DOSAGE NUMBER: 1 UNSPECIFIED UNIT
     Route: 061
     Dates: start: 20211223, end: 20220223
  27. MYSER [DIFLUPREDNATE] [Concomitant]
     Dosage: DOSE 1 UNITS NOT PROVIDED
     Route: 061
     Dates: start: 20220217
  28. MYSER [DIFLUPREDNATE] [Concomitant]
     Dosage: DOSE 1 UNITS NOT PROVIDED
     Route: 061
     Dates: start: 20220224
  29. MIYA-BM [Concomitant]
     Active Substance: CLOSTRIDIUM BUTYRICUM SPORES STRAIN M-55
     Indication: Abdominal distension
     Route: 048
     Dates: start: 20220106, end: 20220922
  30. MONTELUKAST [Concomitant]
     Active Substance: MONTELUKAST SODIUM
     Indication: Cough variant asthma
     Route: 048
     Dates: start: 20200101
  31. GARLIC [Concomitant]
     Active Substance: GARLIC
     Indication: General physical condition
     Route: 048
     Dates: start: 20210901
  32. SYMBICORT [Concomitant]
     Active Substance: BUDESONIDE\FORMOTEROL FUMARATE DIHYDRATE
     Indication: Cough variant asthma
     Route: 055
     Dates: start: 20200101
  33. CINAL [ASCORBIC ACID;CALCIUM PANTOTHENATE] [Concomitant]
     Indication: Vitamin C
     Route: 048
     Dates: start: 20210901
  34. MAGNESIUM OXIDE [Concomitant]
     Active Substance: MAGNESIUM OXIDE
     Indication: Constipation
     Route: 048
     Dates: start: 20130101, end: 20220301
  35. MAGNESIUM OXIDE [Concomitant]
     Active Substance: MAGNESIUM OXIDE
     Route: 048
     Dates: start: 20220301
  36. LEVOCETIRIZINE DIHYDROCHLORIDE [Concomitant]
     Active Substance: LEVOCETIRIZINE DIHYDROCHLORIDE
     Indication: Cough variant asthma
     Route: 048
     Dates: start: 20200101
  37. ALCLOMETASONE DIPROPIONATE [Concomitant]
     Active Substance: ALCLOMETASONE DIPROPIONATE
     Indication: Rash
     Dosage: DRUG STRUCTURE DOSAGE NUMBER: 1 UNSPECIFIED UNIT
     Route: 061
     Dates: start: 20211223, end: 20220105
  38. ALCLOMETASONE DIPROPIONATE [Concomitant]
     Active Substance: ALCLOMETASONE DIPROPIONATE
     Dosage: DRUG STRUCTURE DOSAGE NUMBER: 1 UNSPECIFIED UNIT
     Route: 061
     Dates: start: 20220106, end: 20220116
  39. ALCLOMETASONE DIPROPIONATE [Concomitant]
     Active Substance: ALCLOMETASONE DIPROPIONATE
     Dosage: DOSE 1 UNITS NOT PROVIDED
     Route: 061
     Dates: start: 20220117, end: 20220216
  40. ALCLOMETASONE DIPROPIONATE [Concomitant]
     Active Substance: ALCLOMETASONE DIPROPIONATE
     Dosage: DOSE 1 UNITS NOT PROVIDED
     Route: 061
     Dates: start: 20220217
  41. EURAX H [Concomitant]
     Indication: Rash
     Dosage: DOSE: 1, UNIT: NOT REPORTED
     Route: 061
     Dates: start: 20220217
  42. ALLELOCK [Concomitant]
     Active Substance: OLOPATADINE HYDROCHLORIDE
     Indication: Rash
     Route: 048
     Dates: start: 20220217
  43. POLARAMINE [Concomitant]
     Active Substance: DEXCHLORPHENIRAMINE MALEATE
     Indication: Infusion related reaction
     Route: 042
     Dates: start: 20220317, end: 20220317
  44. CARBOCYSTEINE [Concomitant]
     Active Substance: CARBOCYSTEINE
     Indication: Lung neoplasm malignant
     Route: 048
     Dates: start: 20220331
  45. POSTERISAN FORTE [ESCHERICHIA COLI;HYDROCORTISONE] [Concomitant]
     Indication: Constipation
     Route: 054
     Dates: start: 20220414
  46. VALTREX [Concomitant]
     Active Substance: VALACYCLOVIR HYDROCHLORIDE
     Indication: Herpes zoster
     Route: 048
     Dates: start: 20220427, end: 20220504
  47. HERBALS [Concomitant]
     Active Substance: HERBALS
     Indication: Abdominal distension
     Route: 048
     Dates: start: 20220428
  48. TERRA-CORTRIL [HYDROCORTISONE;OXYTETRACYCLINE HYDROCHLORIDE] [Concomitant]
     Indication: Paronychia
     Dosage: ^1^ DOSAGE; NO DOSAGE UNIT REPORTED
     Route: 062
     Dates: start: 20220512
  49. CLINDAMYCIN PHOSPHATE [Concomitant]
     Active Substance: CLINDAMYCIN PHOSPHATE
     Indication: Rash
     Dosage: DOSE 1, UNITS NOT PROVIDED
     Route: 062
     Dates: start: 20220414

REACTIONS (1)
  - Deep vein thrombosis [Not Recovered/Not Resolved]

NARRATIVE: CASE EVENT DATE: 20220110
